FAERS Safety Report 22340223 (Version 4)
Quarter: 2023Q4

REPORT INFORMATION
  Report Type: Report from Study
  Country: GB (occurrence: GB)
  Receive Date: 20230518
  Receipt Date: 20231118
  Transmission Date: 20240110
  Serious: Yes (Other)
  Sender: FDA-Public Use
  Company Number: GB-ABBVIE-4770501

PATIENT
  Age: 34 Year
  Sex: Male

DRUGS (2)
  1. SKYRIZI [Suspect]
     Active Substance: RISANKIZUMAB-RZAA
     Indication: Psoriasis
     Route: 058
     Dates: start: 20230516
  2. SKYRIZI [Suspect]
     Active Substance: RISANKIZUMAB-RZAA
     Route: 058
     Dates: start: 20230418, end: 20230418

REACTIONS (14)
  - Syncope [Recovered/Resolved]
  - Pruritus [Not Recovered/Not Resolved]
  - Dry eye [Not Recovered/Not Resolved]
  - Diabetes mellitus [Unknown]
  - Dizziness [Unknown]
  - Blood urine present [Unknown]
  - Food craving [Unknown]
  - Nephrolithiasis [Unknown]
  - Skin exfoliation [Unknown]
  - Paraesthesia [Unknown]
  - Pain [Unknown]
  - Skin induration [Unknown]
  - Inflammation [Unknown]
  - Ephelides [Unknown]

NARRATIVE: CASE EVENT DATE: 20230101
